FAERS Safety Report 17299089 (Version 1)
Quarter: 2020Q1

REPORT INFORMATION
  Report Type: Spontaneous
  Country: CA (occurrence: CA)
  Receive Date: 20200121
  Receipt Date: 20200121
  Transmission Date: 20200409
  Serious: Yes (Hospitalization, Other)
  Sender: FDA-Public Use
  Company Number: CA-JNJFOC-20200125682

PATIENT
  Age: 73 Year
  Sex: Female
  Weight: 145 kg

DRUGS (1)
  1. INVOKANA [Suspect]
     Active Substance: CANAGLIFLOZIN
     Indication: DIABETES MELLITUS
     Route: 048

REACTIONS (3)
  - Bacteraemia [Unknown]
  - Localised infection [Unknown]
  - Osteomyelitis [Unknown]
